FAERS Safety Report 7267598-X (Version None)
Quarter: 2011Q1

REPORT INFORMATION
  Report Type: 
  Country: None (occurrence: None)
  Receive Date: 20110121
  Receipt Date: 20110106
  Transmission Date: 20110831
  Serious: Yes (Death, Life-Threatening, Hospitalization)
  Sender: FDA-Public Use
  Company Number: AUR-APL-2010-00095

PATIENT
  Age: 61 Year
  Sex: Male
  Weight: 70 kg

DRUGS (24)
  1. BELCO-ZOC MITE (METOPROLOL SUCCINATE) [Suspect]
     Dosage: 70.75MG - ORAL
     Route: 048
     Dates: start: 20091020, end: 20091024
  2. FLUNITRAZEPAM [Suspect]
     Dosage: 1MG - DAILY - ORAL
     Route: 048
     Dates: start: 20091028, end: 20091028
  3. INSULIN HUMAN [Suspect]
     Dosage: 48 IU - DAILY - SUBQ
     Route: 058
     Dates: start: 20091020
  4. ARIXTRA [Suspect]
     Dosage: 2.5MG - DAILY - SUBQ
     Route: 058
     Dates: start: 20091020, end: 20091028
  5. ASPIRIN [Suspect]
     Dosage: 100MG - DAILY - ORAL
     Route: 048
     Dates: start: 20091020, end: 20091028
  6. EUNERPAN (MELPERONE HCL) [Suspect]
     Dosage: 25MG - DAILY- ORAL
     Route: 048
     Dates: start: 20091020, end: 20091027
  7. TORSEMIDE [Suspect]
     Dosage: 10MG - QD - TID - ORAL
     Route: 048
     Dates: start: 20091020, end: 20091027
  8. ARTERENOL (NOREPINEPHRINE HCL) [Suspect]
     Dosage: 10MG/50MLNACI 0.9% - IV
     Route: 042
     Dates: start: 20091025, end: 20091028
  9. KALINOR (POTASSIUM CHLORIDE) [Suspect]
     Dosage: 1-2 DF - 2-3X/DAY - ORAL
     Route: 048
     Dates: start: 20091021, end: 20091027
  10. SIMVASTATIN [Suspect]
     Dosage: 20MG - DAILY -ORAL
     Route: 048
     Dates: start: 20091025, end: 20091027
  11. FINLEPSIN [Suspect]
     Dosage: 200MG - TID - ORAL
     Route: 048
     Dates: start: 20091020, end: 20091028
  12. HAEMITON (CLONIDINE HCL) ^ANKERPHARM^ [Suspect]
     Dosage: 75?G - BID - ORAL
     Route: 048
     Dates: start: 20091020, end: 20091024
  13. INSULIN BASAL (INSULIN ISOPHANE HUMAN SEMISYNTHETIC) [Suspect]
     Dosage: 22IU - DAILY - SUBQ
     Route: 058
     Dates: start: 20091020, end: 20091021
  14. PIPERACILLIN NA/SULBACTAM NA [Suspect]
     Dosage: ^1.0 DF^ - 1X8HR - IV
     Route: 042
     Dates: start: 20091025, end: 20091027
  15. ZIENAM (CILASTATIN/IMIPENEM) [Suspect]
     Dosage: 1G - 1X8HR -IV
     Route: 042
     Dates: start: 20091028, end: 20091028
  16. INSULIN HUMAN [Suspect]
     Dosage: 50IU - DAILY - SUBQ
     Route: 058
     Dates: start: 20091026, end: 20091028
  17. INSULIN HUMAN [Suspect]
     Dosage: 44IU - DAILY - SUBQ
     Route: 058
     Dates: start: 20091025, end: 20091025
  18. FUROSEMIDE [Suspect]
     Dosage: 20MG - Q8HOURS - IV
     Route: 042
     Dates: start: 20091028, end: 20091028
  19. RAMIPRIL [Suspect]
     Dosage: 2.5MG - DAILY - ORAL
     Route: 048
     Dates: start: 20091021, end: 20091024
  20. INSULIN HUMAN [Suspect]
     Dosage: 22IU - DAILY - SUBQ
     Route: 058
     Dates: start: 20091021, end: 20091024
  21. LANSOPRAZOLE [Suspect]
     Dosage: 15MG - DAILY - ORAL
     Route: 048
     Dates: start: 20091020, end: 20091028
  22. LORAZEPAM [Suspect]
     Dosage: 1MG - BID -ORAL
     Route: 048
     Dates: start: 20091027, end: 20091027
  23. NAC (ACETYLCYSTEINE) ^ALIUD PHARMA^ [Suspect]
     Dosage: 600MG - DAILY - ORAL
     Route: 048
     Dates: start: 20091020, end: 20091028
  24. ZOPICLONE [Suspect]
     Dosage: 7.5MG - DAILY - ORAL
     Route: 048
     Dates: start: 20091020, end: 20091026

REACTIONS (4)
  - RENAL FAILURE ACUTE [None]
  - RHABDOMYOLYSIS [None]
  - SEPSIS [None]
  - HAEMATOCRIT DECREASED [None]
